FAERS Safety Report 13114544 (Version 1)
Quarter: 2017Q1

REPORT INFORMATION
  Report Type: Spontaneous
  Country: US (occurrence: US)
  Receive Date: 20170113
  Receipt Date: 20170113
  Transmission Date: 20170428
  Serious: Yes (Other)
  Sender: FDA-Public Use
  Company Number: US-SA-2017SA004280

PATIENT
  Age: 69 Year
  Sex: Female

DRUGS (2)
  1. ALIROCUMAB PREFILLED PEN [Concomitant]
     Active Substance: ALIROCUMAB
     Route: 058
  2. PRALUENT [Suspect]
     Active Substance: ALIROCUMAB
     Route: 058

REACTIONS (2)
  - Heart rate increased [Unknown]
  - Dyspnoea [Unknown]
